FAERS Safety Report 4410736-4 (Version None)
Quarter: 2004Q2

REPORT INFORMATION
  Report Type: 
  Country: None (occurrence: None)
  Receive Date: 20040630
  Receipt Date: 20040427
  Transmission Date: 20050107
  Serious: No
  Sender: FDA-Public Use
  Company Number: 04P-163-0258892-00

PATIENT
  Age: 60 Year
  Sex: Female
  Weight: 72.5755 kg

DRUGS (14)
  1. HUMIRA [Suspect]
     Indication: RHEUMATOID ARTHRITIS
     Dosage: 40 MG, 1 IN 2 WK, SUBCUTANEOUS
     Route: 058
     Dates: start: 20040311, end: 20040422
  2. LEFLUNOMIDE [Concomitant]
  3. MELOXICAM [Concomitant]
  4. ULTRACET [Concomitant]
  5. VICODIN [Concomitant]
  6. PREDNISONE [Concomitant]
  7. FOSINOPRIL SODIUM [Concomitant]
  8. FELODIPINE [Concomitant]
  9. MISOPROSTOL [Concomitant]
  10. CONJUGATED ESTROGEN [Concomitant]
  11. FLUOXETINE HCL [Concomitant]
  12. FEXOFENADINE HYDROCHLORIDE [Concomitant]
  13. MULTIVITAMIN [Concomitant]
  14. GABAPENTIN [Concomitant]

REACTIONS (5)
  - ERYTHEMA [None]
  - NASOPHARYNGITIS [None]
  - RHEUMATOID ARTHRITIS [None]
  - SKIN SWELLING [None]
  - SKIN WARM [None]
